FAERS Safety Report 11870602 (Version 1)
Quarter: 2015Q4

REPORT INFORMATION
  Report Type: Spontaneous
  Country: US (occurrence: None)
  Receive Date: 20151224
  Receipt Date: 20151224
  Transmission Date: 20160305
  Serious: Yes (Hospitalization)
  Sender: FDA-Public Use
  Company Number: None

PATIENT
  Age: 54 Year
  Sex: Male

DRUGS (1)
  1. CEFAZOLIN [Suspect]
     Active Substance: CEFAZOLIN
     Indication: OSTEOMYELITIS
     Route: 042
     Dates: start: 20150718, end: 20150720

REACTIONS (3)
  - Rash pruritic [None]
  - Rash papular [None]
  - Rash generalised [None]

NARRATIVE: CASE EVENT DATE: 20150720
